FAERS Safety Report 24083611 (Version 1)
Quarter: 2024Q3

REPORT INFORMATION
  Report Type: Spontaneous
  Country: RU (occurrence: RU)
  Receive Date: 20240712
  Receipt Date: 20240712
  Transmission Date: 20241016
  Serious: Yes (Other)
  Sender: NOVARTIS
  Company Number: RU-002147023-NVSC2024RU142732

PATIENT
  Age: 25 Year

DRUGS (5)
  1. TRAMETINIB [Suspect]
     Active Substance: TRAMETINIB
     Indication: Acute myeloid leukaemia
     Dosage: 2 MG (ON DAYS 1-5)
     Route: 065
  2. CYTARABINE [Concomitant]
     Active Substance: CYTARABINE
     Indication: Acute myeloid leukaemia
     Dosage: 1000 MG/M2(ON DAYS 1-5)
     Route: 065
  3. CLADRIBINE [Concomitant]
     Active Substance: CLADRIBINE
     Indication: Acute myeloid leukaemia
     Dosage: 5 MG/M2 (ON DAYS 1-5)
     Route: 065
  4. MITOXANTRONE [Concomitant]
     Active Substance: MITOXANTRONE HYDROCHLORIDE
     Indication: Acute myeloid leukaemia
     Dosage: 10 MG/M2(ON DAYS 1-2)
     Route: 065
  5. PEGASPARGASE [Concomitant]
     Active Substance: PEGASPARGASE
     Indication: Acute myeloid leukaemia
     Dosage: 1000 U/M2
     Route: 065

REACTIONS (2)
  - Cytopenia [Not Recovered/Not Resolved]
  - Product use in unapproved indication [Unknown]
